FAERS Safety Report 7910653-9 (Version None)
Quarter: 2011Q4

REPORT INFORMATION
  Report Type: 
  Country: None (occurrence: None)
  Receive Date: 20111111
  Receipt Date: 20111108
  Transmission Date: 20120403
  Serious: Yes (Death, Hospitalization, Other)
  Sender: FDA-Public Use
  Company Number: PHHY2011RS098435

PATIENT
  Age: 32 Year
  Sex: Male

DRUGS (1)
  1. AMIODARONE HCL [Suspect]
     Indication: CARDIOVERSION
     Dosage: 300 MG, UNK
     Route: 042

REACTIONS (5)
  - RESPIRATORY FAILURE [None]
  - CARDIAC ARREST [None]
  - COMA [None]
  - ACCELERATED IDIOVENTRICULAR RHYTHM [None]
  - VENTRICULAR FIBRILLATION [None]
